FAERS Safety Report 8327437-2 (Version None)
Quarter: 2012Q2

REPORT INFORMATION
  Report Type: 
  Country: None (occurrence: None)
  Receive Date: 20120419
  Receipt Date: 20120409
  Transmission Date: 20120825
  Serious: Yes (Other)
  Sender: FDA-Public Use
  Company Number: 2012031175

PATIENT
  Age: 61 Year
  Sex: Female
  Weight: 74.3899 kg

DRUGS (4)
  1. HIZENTRA [Suspect]
  2. HIZENTRA [Suspect]
     Dosage: SEE IMAGE
     Route: 058
     Dates: start: 20120101
  3. HIZENTRA [Suspect]
     Dosage: SEE IMAGE
     Route: 058
     Dates: start: 20111107
  4. HIZENTRA [Suspect]
     Dosage: SEE IMAGE
     Route: 058
     Dates: start: 20120212

REACTIONS (5)
  - INFUSION SITE PAIN [None]
  - SKIN IRRITATION [None]
  - INFUSION SITE IRRITATION [None]
  - INFUSION SITE HAEMATOMA [None]
  - RESPIRATORY TRACT INFECTION [None]
